FAERS Safety Report 13814464 (Version 1)
Quarter: 2017Q3

REPORT INFORMATION
  Report Type: Spontaneous
  Country: JP (occurrence: JP)
  Receive Date: 20170731
  Receipt Date: 20170731
  Transmission Date: 20171127
  Serious: Yes (Other)
  Sender: FDA-Public Use
  Company Number: JP-BAYER-2017-139730

PATIENT
  Sex: Female

DRUGS (2)
  1. ASPIRIN 100 % [Suspect]
     Active Substance: ASPIRIN
     Indication: ANTIPHOSPHOLIPID SYNDROME
  2. HEPARIN [Suspect]
     Active Substance: HEPARIN SODIUM
     Indication: ANTIPHOSPHOLIPID SYNDROME

REACTIONS (4)
  - Contraindicated product administered [None]
  - Exposure during pregnancy [None]
  - Caesarean section [None]
  - Off label use [None]
